FAERS Safety Report 5569655-2 (Version None)
Quarter: 2007Q4

REPORT INFORMATION
  Report Type: 
  Country: None (occurrence: None)
  Receive Date: 20071220
  Receipt Date: 20071218
  Transmission Date: 20080405
  Serious: Yes (Life-Threatening, Hospitalization)
  Sender: FDA-Public Use
  Company Number: B0487871B

PATIENT
  Age: 43 Year
  Sex: Female
  Weight: 59.3 kg

DRUGS (4)
  1. LAPATINIB [Suspect]
     Route: 048
     Dates: start: 20070910, end: 20071205
  2. CAPECITABINE [Suspect]
     Dosage: 1150MG TWICE PER DAY
     Route: 048
     Dates: start: 20070910, end: 20071128
  3. ERGOTAMINE [Suspect]
     Dosage: 1MG AS REQUIRED
     Route: 048
  4. TOPIRAMATE [Concomitant]

REACTIONS (3)
  - OEDEMA PERIPHERAL [None]
  - RENAL FAILURE ACUTE [None]
  - RETROPERITONEAL FIBROSIS [None]
